FAERS Safety Report 8343474-6 (Version None)
Quarter: 2012Q2

REPORT INFORMATION
  Report Type: 
  Country: None (occurrence: None)
  Receive Date: 20120508
  Receipt Date: 20100514
  Transmission Date: 20120825
  Serious: No
  Sender: FDA-Public Use
  Company Number: US-TEVA-2010002757

PATIENT
  Sex: Male

DRUGS (1)
  1. TREANDA [Suspect]
     Route: 042

REACTIONS (2)
  - MUSCLE SPASMS [None]
  - DIZZINESS [None]
